FAERS Safety Report 18618539 (Version 1)
Quarter: 2020Q4

REPORT INFORMATION
  Report Type: Spontaneous
  Country: US (occurrence: US)
  Receive Date: 20201215
  Receipt Date: 20201215
  Transmission Date: 20210114
  Serious: No
  Sender: FDA-Public Use
  Company Number: US-LUPIN PHARMACEUTICALS INC.-2020-10170

PATIENT
  Age: 40 Year

DRUGS (6)
  1. METHOXSALEN. [Suspect]
     Active Substance: METHOXSALEN
     Indication: DERMATITIS ALLERGIC
     Dosage: 10 MILLIGRAM
     Route: 065
  2. MIRTAZAPINE. [Suspect]
     Active Substance: MIRTAZAPINE
     Indication: DERMATITIS ALLERGIC
     Dosage: UNK
     Route: 065
  3. GABAPENTIN. [Suspect]
     Active Substance: GABAPENTIN
     Indication: DERMATITIS ALLERGIC
     Dosage: UNK
     Route: 065
  4. DUPILUMAB [Suspect]
     Active Substance: DUPILUMAB
     Indication: DERMATITIS ALLERGIC
     Dosage: UNK
     Route: 065
  5. PAROXETINE. [Suspect]
     Active Substance: PAROXETINE
     Indication: DERMATITIS ALLERGIC
     Dosage: UNK
     Route: 065
  6. BUTORPHANOL [Concomitant]
     Active Substance: BUTORPHANOL
     Indication: DERMATITIS ALLERGIC
     Dosage: 10 MILLIGRAM PER MILLILITRE, PRN-
     Route: 045

REACTIONS (1)
  - Treatment failure [Unknown]
